FAERS Safety Report 14278567 (Version 2)
Quarter: 2018Q4

REPORT INFORMATION
  Report Type: Spontaneous
  Country: PL (occurrence: PL)
  Receive Date: 20171212
  Receipt Date: 20181219
  Transmission Date: 20190204
  Serious: Yes (Death, Other)
  Sender: FDA-Public Use
  Company Number: PL-MYLANLABS-2017M1077992

PATIENT

DRUGS (19)
  1. TRAMADOL. [Suspect]
     Active Substance: TRAMADOL
     Dosage: UNK
     Route: 065
     Dates: start: 201208
  2. MORPHINE [Suspect]
     Active Substance: MORPHINE
     Dosage: 10 MG, Q4H
     Route: 058
     Dates: start: 20120817
  3. METAMIZOLE [Concomitant]
     Active Substance: METAMIZOLE
     Indication: ANALGESIC THERAPY
     Dosage: UNK
     Route: 065
     Dates: start: 2012
  4. SODIUM VALPROATE [Concomitant]
     Active Substance: VALPROATE SODIUM
     Indication: EPILEPSY
     Dosage: 1000 MG, QD
     Route: 065
     Dates: start: 2012
  5. TRAMADOL. [Suspect]
     Active Substance: TRAMADOL
     Dosage: 50 MG, EVERY 6-8 HOURS
     Route: 048
     Dates: start: 20120606
  6. MORPHINE [Suspect]
     Active Substance: MORPHINE
     Indication: PAIN
     Dosage: 0.5 MILLILITER, PRN (2.5 MG)
     Route: 048
     Dates: start: 20120615
  7. MORPHINE [Suspect]
     Active Substance: MORPHINE
     Dosage: 1 DF, Q6H
     Route: 058
     Dates: start: 201208
  8. TRAMADOL. [Suspect]
     Active Substance: TRAMADOL
     Indication: PAIN
     Dosage: UNK UNK, PRN (50-75 MG DROPS)
     Route: 065
     Dates: start: 2012
  9. TRAMADOL. [Suspect]
     Active Substance: TRAMADOL
     Dosage: 400 MG, QD
     Route: 065
     Dates: start: 20120807
  10. OXYCODONE [Suspect]
     Active Substance: OXYCODONE
     Indication: PAIN
     Dosage: 20 MILLIGRAM, QD (CONTROLLED RELEASE)
     Route: 065
     Dates: start: 20120807
  11. INSULIN [Concomitant]
     Active Substance: INSULIN NOS
     Indication: TYPE 2 DIABETES MELLITUS
     Dosage: UNK
     Route: 065
  12. CIPROFLOXACIN. [Concomitant]
     Active Substance: CIPROFLOXACIN
     Indication: MORGANELLA INFECTION
     Dosage: 1000 MILLIGRAM, QD
     Route: 048
     Dates: start: 201206
  13. TRIMETHOPRIM. [Concomitant]
     Active Substance: TRIMETHOPRIM
     Indication: MORGANELLA INFECTION
     Dosage: 5 MILLILITER, BID (240 MG/5 ML SUSPENSION, RECOMMENDED 5 ML EVERY 5)
     Route: 048
     Dates: start: 20120621, end: 20120621
  14. TRAMADOL. [Suspect]
     Active Substance: TRAMADOL
     Dosage: UNK
     Route: 065
     Dates: start: 20120621
  15. MORPHINE [Suspect]
     Active Substance: MORPHINE
     Dosage: 5 MG, Q4H
     Route: 048
     Dates: start: 20120621, end: 20120621
  16. MORPHINE [Suspect]
     Active Substance: MORPHINE
     Dosage: 1 DF, UNK (ATTEMPTS TO START MORPHINE AT INTERVAL OF 3-4 DAYS)
     Route: 065
     Dates: start: 2012, end: 2012
  17. CODEINE [Concomitant]
     Active Substance: CODEINE
     Indication: ANALGESIC THERAPY
     Dosage: UNK
     Route: 065
     Dates: start: 2012
  18. MORPHINE [Suspect]
     Active Substance: MORPHINE
     Dosage: UNK
     Route: 058
     Dates: start: 201208
  19. PAPAVERINE [Concomitant]
     Active Substance: PAPAVERINE
     Indication: ANALGESIC THERAPY
     Dosage: UNK
     Route: 065
     Dates: start: 2012

REACTIONS (8)
  - Death [Fatal]
  - Pyrexia [Recovered/Resolved]
  - Musculoskeletal stiffness [Unknown]
  - Hyperthermia [Recovered/Resolved]
  - Communication disorder [Unknown]
  - Apathy [Unknown]
  - Chills [Recovered/Resolved]
  - Somnolence [Unknown]

NARRATIVE: CASE EVENT DATE: 20120612
